FAERS Safety Report 5712021-7 (Version None)
Quarter: 2008Q2

REPORT INFORMATION
  Report Type: 
  Country: None (occurrence: None)
  Receive Date: 20080417
  Receipt Date: 20080403
  Transmission Date: 20081010
  Serious: Yes (Death, Other)
  Sender: FDA-Public Use
  Company Number: 2008000369

PATIENT
  Age: 65 Year
  Sex: Male

DRUGS (7)
  1. ERLOTINIB (ERLOTINIB HCL) (TABLET) (ERLOTINIB HCL) [Suspect]
     Indication: LUNG SQUAMOUS CELL CARCINOMA STAGE UNSPECIFIED
     Dosage: (150 MG, QD), ORAL
     Route: 048
     Dates: start: 20080107, end: 20080129
  2. RABEPRAZOLE SODIUM [Concomitant]
  3. ALLOPURINOL [Concomitant]
  4. TEGRETOL [Concomitant]
  5. METHYCOBAL (MECOBALAMIN) [Concomitant]
  6. OXYCONTIN [Concomitant]
  7. MAGNESIUM OXIDE (MAGNESIUM OXIDE) [Concomitant]

REACTIONS (5)
  - DISEASE PROGRESSION [None]
  - HYPERKALAEMIA [None]
  - HYPERURICAEMIA [None]
  - RENAL TUBULAR DISORDER [None]
  - TUMOUR EMBOLISM [None]
